FAERS Safety Report 9784198 (Version 1)
Quarter: 2013Q4

REPORT INFORMATION
  Report Type: Spontaneous
  Country: ES (occurrence: ES)
  Receive Date: 20131226
  Receipt Date: 20131226
  Transmission Date: 20140711
  Serious: Yes (Hospitalization, Other)
  Sender: FDA-Public Use
  Company Number: ES-ABBVIE-13P-144-1181838-00

PATIENT
  Age: 42 Year
  Sex: Female

DRUGS (9)
  1. NORVIR [Suspect]
     Indication: HIV INFECTION
     Route: 048
     Dates: start: 20120821, end: 20130511
  2. TELZIR [Suspect]
     Indication: HIV INFECTION
     Route: 048
     Dates: start: 20120821, end: 20130511
  3. TRUVADA [Interacting]
     Indication: HIV INFECTION
     Route: 048
     Dates: start: 20120821, end: 20130511
  4. NEXAVAR [Interacting]
     Indication: HEPATIC CANCER
     Route: 048
     Dates: start: 20130430, end: 20130522
  5. PARACETAMOL [Concomitant]
     Indication: PRODUCT USED FOR UNKNOWN INDICATION
  6. ALDACTONE [Concomitant]
     Indication: PRODUCT USED FOR UNKNOWN INDICATION
  7. CLEXANE [Concomitant]
     Indication: PRODUCT USED FOR UNKNOWN INDICATION
  8. DROAL [Concomitant]
     Indication: PRODUCT USED FOR UNKNOWN INDICATION
  9. NOLOTIL [Concomitant]
     Indication: PRODUCT USED FOR UNKNOWN INDICATION

REACTIONS (2)
  - Hepatotoxicity [Recovered/Resolved]
  - Drug interaction [Recovered/Resolved]
